FAERS Safety Report 15000443 (Version 1)
Quarter: 2018Q2

REPORT INFORMATION
  Report Type: Spontaneous
  Country: IT (occurrence: IT)
  Receive Date: 20180612
  Receipt Date: 20180612
  Transmission Date: 20180711
  Serious: Yes (Hospitalization)
  Sender: FDA-Public Use
  Company Number: IT-EISAI MEDICAL RESEARCH-EC-2018-040805

PATIENT
  Age: 66 Year
  Sex: Female

DRUGS (4)
  1. ACTIVATED VITAMIN D [Concomitant]
     Indication: POST PROCEDURAL HYPOPARATHYROIDISM
     Dosage: UNKNOWN
     Route: 048
     Dates: start: 2015
  2. CALCIUM [Concomitant]
     Active Substance: CALCIUM
     Indication: POST PROCEDURAL HYPOPARATHYROIDISM
     Dosage: UNKNOWN
     Route: 048
     Dates: start: 2015
  3. LENVATINIB [Suspect]
     Active Substance: LENVATINIB
     Indication: THYROID CANCER
     Route: 048
     Dates: start: 201706, end: 2017
  4. LEVOTHYROXINE. [Concomitant]
     Active Substance: LEVOTHYROXINE
     Indication: POST PROCEDURAL HYPOTHYROIDISM
     Dates: start: 2015

REACTIONS (1)
  - Vomiting [Recovering/Resolving]

NARRATIVE: CASE EVENT DATE: 2017
